FAERS Safety Report 7538924-9 (Version None)
Quarter: 2011Q2

REPORT INFORMATION
  Report Type: 
  Country: None (occurrence: None)
  Receive Date: 20110610
  Receipt Date: 20110530
  Transmission Date: 20111010
  Serious: Yes (Hospitalization)
  Sender: FDA-Public Use
  Company Number: HU-JNJFOC-20110600892

PATIENT
  Sex: Female
  Weight: 67 kg

DRUGS (1)
  1. PALIPERIDONE PALMITATE [Suspect]
     Indication: SCHIZOPHRENIA
     Route: 030
     Dates: start: 20100921, end: 20110526

REACTIONS (3)
  - ANXIETY [None]
  - SCHIZOPHRENIA [None]
  - DEPRESSION [None]
